FAERS Safety Report 8364242-5 (Version None)
Quarter: 2012Q2

REPORT INFORMATION
  Report Type: 
  Country: None (occurrence: None)
  Receive Date: 20120516
  Receipt Date: 20120514
  Transmission Date: 20120825
  Serious: Yes (Hospitalization)
  Sender: FDA-Public Use
  Company Number: JP-PFIZER INC-2012076311

PATIENT
  Age: 77 Year
  Sex: Male
  Weight: 48 kg

DRUGS (17)
  1. TEMSIROLIMUS [Suspect]
     Dosage: 20 MG, UNK
     Dates: start: 20110801
  2. TEMSIROLIMUS [Suspect]
     Dosage: 20 MG, UNK
     Dates: start: 20110725
  3. TEMSIROLIMUS [Suspect]
     Dosage: 20 MG, UNK
     Dates: start: 20110815
  4. MS HOT PACK [Concomitant]
     Indication: RENAL CELL CARCINOMA
     Dosage: UNK
  5. CHLOR-TRIMETON [Concomitant]
     Indication: PROPHYLAXIS
     Dosage: 10 MG, 1X/DAY
     Route: 042
  6. GASMOTIN [Concomitant]
     Dosage: 5 MG, 3X/DAY
     Route: 048
  7. ETODOLAC [Concomitant]
     Indication: RENAL CELL CARCINOMA
     Dosage: 200 MG, 2X/DAY
     Route: 048
  8. CEFAZOLIN SODIUM [Concomitant]
     Indication: DIARRHOEA
     Dosage: 1 DF, 3X/DAY
     Route: 048
  9. MAGMITT [Concomitant]
     Dosage: 2 DF, 3X/DAY
     Route: 048
     Dates: start: 20110602
  10. PYRINAZIN [Concomitant]
     Indication: RENAL CELL CARCINOMA
     Dosage: 0.3 G, 3X/DAY
     Route: 048
  11. TEMSIROLIMUS [Suspect]
     Dosage: 20 MG, UNK
     Dates: start: 20110808
  12. TEMSIROLIMUS [Suspect]
     Indication: RENAL CELL CARCINOMA
     Dosage: 25 MG, UNK
     Dates: start: 20110531
  13. TEMSIROLIMUS [Suspect]
     Dosage: 25 MG, UNK
     Dates: start: 20110607
  14. TEMSIROLIMUS [Suspect]
     Dosage: 25 MG, UNK
     Dates: start: 20110627
  15. TRAMADOL HYDROCHLORIDE [Concomitant]
     Indication: RENAL CELL CARCINOMA
     Dosage: 25 MG, 3X/DAY
     Route: 048
  16. FAMOTIDINE [Concomitant]
     Dosage: 20 MG, 1X/DAY
     Route: 048
  17. PL GRAN. [Concomitant]
     Indication: NASOPHARYNGITIS
     Dosage: 1 G, 3X/DAY
     Route: 048
     Dates: end: 20110606

REACTIONS (1)
  - HYPERKALAEMIA [None]
